FAERS Safety Report 19370029 (Version 1)
Quarter: 2021Q2

REPORT INFORMATION
  Report Type: Report from Study
  Country: US (occurrence: US)
  Receive Date: 20210604
  Receipt Date: 20210604
  Transmission Date: 20210717
  Serious: Yes (Hospitalization, Other)
  Sender: FDA-Public Use
  Company Number: US-AUROBINDO-AUR-APL-2021-022975

PATIENT
  Age: 69 Year
  Sex: Female

DRUGS (1)
  1. ROCURONIUM BROMIDE. [Suspect]
     Active Substance: ROCURONIUM BROMIDE
     Indication: SARCOMA
     Dosage: UNK
     Route: 065

REACTIONS (4)
  - Sleep apnoea syndrome [Unknown]
  - Unresponsive to stimuli [Unknown]
  - Aspiration [Unknown]
  - Hypoxia [Unknown]
